FAERS Safety Report 6608324-4 (Version None)
Quarter: 2010Q1

REPORT INFORMATION
  Report Type: 
  Country: None (occurrence: None)
  Receive Date: 20100301
  Receipt Date: 20100223
  Transmission Date: 20100710
  Serious: Yes (Hospitalization, Other)
  Sender: FDA-Public Use
  Company Number: US-BRISTOL-MYERS SQUIBB COMPANY-14895890

PATIENT
  Age: 76 Year
  Sex: Female

DRUGS (1)
  1. ERBITUX [Suspect]
     Indication: COLON CANCER METASTATIC
     Dosage: LOADING DOSE 800MG FOR 2 HR
     Route: 042
     Dates: start: 20091130

REACTIONS (3)
  - DEEP VEIN THROMBOSIS [None]
  - INFUSION RELATED REACTION [None]
  - PULMONARY EMBOLISM [None]
